FAERS Safety Report 9447728 (Version 1)
Quarter: 2013Q3

REPORT INFORMATION
  Report Type: Spontaneous
  Country: FR (occurrence: FR)
  Receive Date: 20130808
  Receipt Date: 20130808
  Transmission Date: 20140515
  Serious: Yes (Hospitalization)
  Sender: FDA-Public Use
  Company Number: FR-MERCK-1307FRA017030

PATIENT
  Age: 68 Year
  Sex: Male

DRUGS (9)
  1. FORTZAAR 100 MG/25 MG, COMPRIM? PELLICUL? [Suspect]
     Dosage: UNK UNK, QD
     Route: 048
     Dates: end: 20130701
  2. ONGLYZA [Suspect]
     Dosage: 5 MG, QD
     Route: 048
     Dates: end: 20130701
  3. GLUCOR [Concomitant]
     Dosage: UNK
  4. METFORMIN [Concomitant]
     Dosage: UNK
  5. LANTUS [Concomitant]
     Dosage: UNK
  6. PAROXETINE [Concomitant]
     Dosage: UNK
  7. TEMERIT [Concomitant]
     Dosage: UNK
  8. TAHOR [Concomitant]
     Dosage: UNK
  9. KARDEGIC [Concomitant]
     Dosage: UNK

REACTIONS (3)
  - Hyperlipasaemia [Recovered/Resolved]
  - Nausea [Recovered/Resolved]
  - Vomiting [Recovered/Resolved]
